FAERS Safety Report 5809686-8 (Version None)
Quarter: 2008Q3

REPORT INFORMATION
  Report Type: 
  Country: None (occurrence: None)
  Receive Date: 20080715
  Receipt Date: 20080704
  Transmission Date: 20090109
  Serious: Yes (Death, Life-Threatening)
  Sender: FDA-Public Use
  Company Number: JP-WYE-H04465008

PATIENT
  Sex: Male

DRUGS (19)
  1. ANCARON [Suspect]
     Indication: VENTRICULAR TACHYCARDIA
     Dosage: 200 MG DAILY
     Route: 048
     Dates: start: 20080601, end: 20080606
  2. ANCARON [Suspect]
     Indication: VENTRICULAR FIBRILLATION
  3. CIBENOL [Concomitant]
     Route: 048
     Dates: start: 20080522, end: 20080601
  4. TANATRIL [Concomitant]
     Route: 048
     Dates: start: 20080522
  5. FAMOTIDINE [Concomitant]
     Route: 048
     Dates: start: 20080521
  6. SERMION [Concomitant]
     Route: 048
     Dates: start: 20080526
  7. SYMMETREL [Concomitant]
     Route: 048
     Dates: start: 20080526
  8. ASPIRIN [Concomitant]
     Route: 048
     Dates: start: 20080526
  9. CLEANAL [Concomitant]
     Route: 048
     Dates: start: 20080526
  10. LACTOBACILLUS ACIDOPHILUS [Concomitant]
     Dosage: 3 G, FREQUENCY NOT SPECIFIED
     Route: 065
     Dates: start: 20080526
  11. ALDACTONE [Concomitant]
     Route: 048
     Dates: start: 20080527
  12. DIART [Concomitant]
     Route: 048
     Dates: start: 20080527
  13. LASIX [Concomitant]
     Dosage: DOSE AND FREQUENCY NOT SPECIFIED
     Route: 048
     Dates: end: 20080528
  14. HUMULIN R [Concomitant]
     Dosage: 12 UNITS, FREQUENCY NOT SPECIFIED
     Route: 065
     Dates: end: 20080605
  15. LIDOCAINE [Concomitant]
     Dosage: DOSE AND FREQUENCY NOT SPECIFIED
     Route: 065
  16. VASOLAN [Concomitant]
     Dosage: DOSE AND FREQUENCY NOT SPECIFIED
     Route: 048
     Dates: start: 20080602, end: 20080605
  17. LIDOCAINE 2% [Concomitant]
     Dosage: DOSE AND FREQUENCY NOT SPECIFIED
     Route: 065
     Dates: start: 20080601
  18. ARTIST [Concomitant]
     Route: 048
     Dates: start: 20080522, end: 20080527
  19. ARTIST [Concomitant]
     Route: 048
     Dates: start: 20080528, end: 20080611

REACTIONS (4)
  - CANDIDIASIS [None]
  - CONDITION AGGRAVATED [None]
  - INTERSTITIAL LUNG DISEASE [None]
  - MULTI-ORGAN FAILURE [None]
